FAERS Safety Report 16196175 (Version 1)
Quarter: 2019Q2

REPORT INFORMATION
  Report Type: Other
  Country: DE (occurrence: DE)
  Receive Date: 20190415
  Receipt Date: 20190415
  Transmission Date: 20190711
  Serious: Yes (Congenital Anomaly, Other)
  Sender: FDA-Public Use
  Company Number: DE-LUPIN PHARMACEUTICALS INC.-2019-02231

PATIENT
  Age: 1 Day
  Sex: Male
  Weight: 3.95 kg

DRUGS (2)
  1. LAMOTRIGINE. [Suspect]
     Active Substance: LAMOTRIGINE
     Indication: EPILEPSY
     Dosage: 100 MILLIGRAM, QD
     Route: 064
     Dates: start: 20170704, end: 20180410
  2. LEVETIRACETAM. [Suspect]
     Active Substance: LEVETIRACETAM
     Indication: EPILEPSY
     Dosage: 1000- 0 - 1500 MILLIGRAM, QD
     Route: 064
     Dates: start: 20170704, end: 20180410

REACTIONS (3)
  - Foetal exposure during pregnancy [Unknown]
  - Cryptorchism [Recovered/Resolved]
  - Drug withdrawal syndrome neonatal [Recovered/Resolved]

NARRATIVE: CASE EVENT DATE: 20180410
